FAERS Safety Report 23551311 (Version 3)
Quarter: 2024Q3

REPORT INFORMATION
  Report Type: Spontaneous
  Country: PK (occurrence: PK)
  Receive Date: 20240222
  Receipt Date: 20240901
  Transmission Date: 20241017
  Serious: Yes (Other)
  Sender: AMGEN
  Company Number: PK-PFIZER INC-2021622579

PATIENT
  Age: 57 Year
  Sex: Female

DRUGS (40)
  1. ENBREL [Suspect]
     Active Substance: BENZYL ALCOHOL\ETANERCEPT
     Indication: Rheumatoid arthritis
     Dosage: 50 MG, WEEKLY
     Route: 058
     Dates: start: 20210529, end: 20230128
  2. ENBREL [Suspect]
     Active Substance: BENZYL ALCOHOL\ETANERCEPT
     Dosage: 50 MG, AFTER EVERY TWO WEEKS/50MG EVERY TWO WEEKS/ONCE IN TWO WEEKS
     Route: 058
     Dates: start: 20230128
  3. LEFLUNOMIDE [Concomitant]
     Active Substance: LEFLUNOMIDE
     Dosage: 20 MG, 1X/DAY (AFTER BREAKFAST CONTINUE)
     Route: 065
  4. PLAQUENIL [Concomitant]
     Active Substance: HYDROXYCHLOROQUINE SULFATE
     Dosage: UNK, 1+1 IN MORNING AND EVENING
     Route: 065
  5. OXYCLOR [Concomitant]
     Dosage: 200 MG, 2X/DAY
     Route: 065
  6. FOLIC ACID [Concomitant]
     Active Substance: FOLIC ACID
     Dosage: 1 DF, DAILY
     Route: 065
  7. LYRICA [Concomitant]
     Active Substance: PREGABALIN
     Dosage: UNK, 1+1 IN MORNING AND EVENING
     Route: 065
  8. LYRICA [Concomitant]
     Active Substance: PREGABALIN
     Dosage: 1 DF, DAILY AT NIGHT FOR 2 WEEKS THEN STOP
     Route: 065
  9. LYRICA [Concomitant]
     Active Substance: PREGABALIN
     Dosage: 1 DF, DAILY AT NIGHT
  10. HYDROXYCHLOROQUINE SULFATE [Concomitant]
     Active Substance: HYDROXYCHLOROQUINE SULFATE
     Dosage: 200 MG, 2X/DAY
     Route: 065
  11. Myonal [Concomitant]
     Indication: Muscle strain
     Dosage: 50 MG, DAILY
     Route: 065
  12. AMPICILLIN [Concomitant]
     Active Substance: AMPICILLIN
     Dosage: UNK
     Route: 065
  13. Zeegap [Concomitant]
     Dosage: 50 MG, DAILY
     Route: 065
  14. VITAMIN D3 [Concomitant]
     Active Substance: CHOLECALCIFEROL
     Dosage: 200000 IU, ONCE A WEEK FOR 4 WEEKS
     Route: 065
  15. VITAMIN D3 [Concomitant]
     Active Substance: CHOLECALCIFEROL
     Dosage: 200000 IU, MONTHLY (ONCE EVERY MONTH)
     Route: 065
  16. CALTRATE [Concomitant]
     Active Substance: CALCIUM CARBONATE
     Dosage: 600 MG, DAILY (AFTER BREAKFAST)
     Route: 065
  17. Selanz sr [Concomitant]
     Dosage: IN MORNING AND EVENING HALF AN HOUR BEFORE MEAL
     Route: 065
  18. Selanz sr [Concomitant]
     Dosage: IN MORNING HALF AN HOUR BEFORE MEAL CONTINUE
     Route: 065
  19. Selanz sr [Concomitant]
     Dosage: 1/2 HR BEFORE BREAKFAST
     Route: 065
  20. DICLOFENAC SODIUM [Concomitant]
     Active Substance: DICLOFENAC\DICLOFENAC SODIUM
     Indication: Pain
     Dosage: IN MORNING AND EVENING MASSAGE OVER AREAS WHERE IT PAINS AND WARM COMPRESS, AS PER NEEDQ
     Route: 065
  21. DICLOFENAC SODIUM [Concomitant]
     Active Substance: DICLOFENAC\DICLOFENAC SODIUM
     Indication: Heat therapy
     Dosage: UNK
     Route: 065
  22. NEXIUM [Concomitant]
     Active Substance: ESOMEPRAZOLE MAGNESIUM
     Dosage: 40 MG
     Route: 065
  23. MOBIKARE [Concomitant]
     Dosage: UNK
     Route: 065
  24. XOBIX [Concomitant]
     Dosage: 15 MG, DAILY
     Route: 065
  25. KETOPROFEN [Concomitant]
     Active Substance: KETOPROFEN
     Indication: Pain
     Dosage: UNK, AS NEEDED
     Route: 065
  26. RABECID [Concomitant]
     Dosage: 20 MG, 1X/DAY
     Route: 065
  27. ACECLOFENAC [Concomitant]
     Active Substance: ACECLOFENAC
     Indication: Pain
     Dosage: 100 MG, 2X/DAY
     Route: 065
  28. ACECLOFENAC [Concomitant]
     Active Substance: ACECLOFENAC
     Dosage: UNK
     Route: 065
  29. LOSEC [Concomitant]
     Active Substance: OMEPRAZOLE
     Dosage: 1 DF, DAILY
     Route: 065
  30. Neuromet [Concomitant]
     Dosage: 500 MG 1+1 IN MORNING AND EVENING CONTINUE
     Route: 065
  31. Nocid [Concomitant]
     Dosage: 1 TAB AT NIGHT BEFORE MEAL AS PER NEED
     Route: 065
  32. NUBEROL [Concomitant]
     Indication: Muscle strain
     Dosage: UNK, AS NEEDED, 1+1 IN MORNING AND EVENING
     Route: 065
  33. NUBEROL [Concomitant]
     Dosage: 2 TIMES FOR 2 WEEKS THEN WHEN NEEDED
     Route: 065
  34. TIZANIDINE [Concomitant]
     Active Substance: TIZANIDINE
     Indication: Muscle strain
     Dosage: HALF TAB AT NIGHT FOR 2 WEEKS
     Route: 065
  35. TIZANIDINE [Concomitant]
     Active Substance: TIZANIDINE
     Indication: Muscle spasms
     Dosage: 1 TAB AT NIGHT FOR 2 WEEKS
  36. TIZANIDINE [Concomitant]
     Active Substance: TIZANIDINE
     Dosage: AS PER NEED
     Route: 065
  37. COENZYME Q10 [Concomitant]
     Active Substance: DIETARY SUPPLEMENT\UBIDECARENONE
     Dosage: 100 MG, DAILY
     Route: 065
  38. MagnesiMed [Concomitant]
     Dosage: 500 MG, DAILY
     Route: 065
  39. CALCIUM+VITAMIN C [Concomitant]
     Dosage: 1 DF, 1X/DAY (1 TAB EVERY EVENING)
     Route: 065
  40. CHONDROITIN SULFATE A\GLUCOSAMINE [Concomitant]
     Active Substance: CHONDROITIN SULFATE A\GLUCOSAMINE
     Dosage: 1 DF, 2X/DAY
     Route: 065

REACTIONS (12)
  - Back pain [Recovering/Resolving]
  - Thrombocytopenia [Recovering/Resolving]
  - Arthralgia [Not Recovered/Not Resolved]
  - Joint range of motion decreased [Unknown]
  - Joint noise [Unknown]
  - Synovitis [Recovered/Resolved]
  - Platelet count decreased [Unknown]
  - Restlessness [Unknown]
  - Red blood cell sedimentation rate increased [Unknown]
  - Muscle spasms [Unknown]
  - Fatigue [Unknown]
  - Off label use [Unknown]

NARRATIVE: CASE EVENT DATE: 20230128
